FAERS Safety Report 12098409 (Version 1)
Quarter: 2016Q1

REPORT INFORMATION
  Report Type: Spontaneous
  Country: US (occurrence: US)
  Receive Date: 20160222
  Receipt Date: 20160222
  Transmission Date: 20160526
  Serious: Yes (Death)
  Sender: FDA-Public Use
  Company Number: US-ROCHE-1714211

PATIENT
  Age: 68 Year
  Sex: Female
  Weight: 77.18 kg

DRUGS (1)
  1. AVASTIN [Suspect]
     Active Substance: BEVACIZUMAB
     Indication: LUNG NEOPLASM MALIGNANT
     Route: 042
     Dates: start: 20151029

REACTIONS (1)
  - Death [Fatal]

NARRATIVE: CASE EVENT DATE: 20160130
